FAERS Safety Report 7153052-2 (Version None)
Quarter: 2010Q4

REPORT INFORMATION
  Report Type: 
  Country: None (occurrence: None)
  Receive Date: 20101130
  Receipt Date: 20101106
  Transmission Date: 20110411
  Serious: No
  Sender: FDA-Public Use
  Company Number: 54973

PATIENT
  Sex: Female
  Weight: 9.5255 kg

DRUGS (1)
  1. HYLAND'S TEETHING TABLETS [Suspect]
     Indication: TEETHING
     Dosage: 2 TABS Q4H

REACTIONS (1)
  - CONVULSION [None]
